FAERS Safety Report 4927083-4 (Version None)
Quarter: 2006Q1

REPORT INFORMATION
  Report Type: 
  Country: None (occurrence: None)
  Receive Date: 20060228
  Receipt Date: 20051018
  Transmission Date: 20060701
  Serious: No
  Sender: FDA-Public Use
  Company Number: US-GLAXOSMITHKLINE-A0578898A

PATIENT
  Age: 49 Year
  Sex: Female
  Weight: 61.4 kg

DRUGS (2)
  1. LAMICTAL [Suspect]
     Dosage: 150MG TWICE PER DAY
     Route: 048
  2. LITHIUM [Concomitant]
     Dosage: 900MG PER DAY

REACTIONS (1)
  - EYE PAIN [None]
